FAERS Safety Report 15599570 (Version 1)
Quarter: 2018Q4

REPORT INFORMATION
  Report Type: Spontaneous
  Country: US (occurrence: US)
  Receive Date: 20181108
  Receipt Date: 20181108
  Transmission Date: 20190205
  Serious: Yes (Hospitalization)
  Sender: FDA-Public Use
  Company Number: US-CORCEPT THERAPEUTICS INC.-US-2018CRT001192

PATIENT

DRUGS (2)
  1. KORLYM [Suspect]
     Active Substance: MIFEPRISTONE
     Indication: CUSHING^S SYNDROME
     Dosage: 600 MG, QD
     Dates: start: 201808, end: 201810
  2. KORLYM [Suspect]
     Active Substance: MIFEPRISTONE
     Dosage: UNK

REACTIONS (5)
  - Infection [Unknown]
  - Urinary tract infection [Unknown]
  - Adrenocortical insufficiency acute [Unknown]
  - Sepsis [Unknown]
  - Septic shock [Unknown]

NARRATIVE: CASE EVENT DATE: 201810
